FAERS Safety Report 18290253 (Version 1)
Quarter: 2020Q3

REPORT INFORMATION
  Report Type: Spontaneous
  Country: IT (occurrence: IT)
  Receive Date: 20200921
  Receipt Date: 20200921
  Transmission Date: 20201103
  Serious: Yes (Congenital Anomaly, Other)
  Sender: FDA-Public Use
  Company Number: IT-SEBELA IRELAND LIMITED-2020SEB00117

PATIENT
  Sex: Male
  Weight: .92 kg

DRUGS (3)
  1. HYDROXYCHLOROQUINE [Concomitant]
     Active Substance: HYDROXYCHLOROQUINE
     Dosage: 200 MG, EVERY 48 HOURS (EVERY OTHER DAY)
     Route: 064
  2. AZATHIOPRINE. [Suspect]
     Active Substance: AZATHIOPRINE
     Indication: SYSTEMIC LUPUS ERYTHEMATOSUS
     Dosage: 50 MG, 1X/DAY
     Route: 064
  3. ACETYLSALICYLIC ACID [Concomitant]
     Active Substance: ASPIRIN
     Dosage: 100 MG, 1X/DAY
     Route: 064

REACTIONS (6)
  - Deafness unilateral [Unknown]
  - Congenital cytomegalovirus infection [Recovered/Resolved]
  - Foetal growth restriction [Recovered/Resolved]
  - Foetal exposure during pregnancy [Recovered/Resolved]
  - Growth disorder [Not Recovered/Not Resolved]
  - Intraventricular haemorrhage neonatal [Unknown]
